FAERS Safety Report 10617902 (Version 1)
Quarter: 2014Q4

REPORT INFORMATION
  Report Type: Spontaneous
  Country: US (occurrence: US)
  Receive Date: 20141201
  Receipt Date: 20141201
  Transmission Date: 20150529
  Serious: No
  Sender: FDA-Public Use
  Company Number: US-ASTRAZENECA-2014SE82457

PATIENT
  Age: 40 Year
  Sex: Female
  Weight: 98 kg

DRUGS (4)
  1. TOPROL XL [Suspect]
     Active Substance: METOPROLOL SUCCINATE
     Indication: ATRIAL FIBRILLATION
     Route: 048
     Dates: start: 2008, end: 201410
  2. ASPRIN [Concomitant]
     Active Substance: ASPIRIN
     Indication: ATRIAL FIBRILLATION
     Dates: start: 2008
  3. TOPROL XL [Suspect]
     Active Substance: METOPROLOL SUCCINATE
     Indication: ATRIAL FIBRILLATION
     Route: 048
     Dates: start: 2008
  4. TOPROL XL [Suspect]
     Active Substance: METOPROLOL SUCCINATE
     Indication: ATRIAL FIBRILLATION
     Route: 048
     Dates: start: 201410

REACTIONS (9)
  - Fatigue [Not Recovered/Not Resolved]
  - Dizziness [Not Recovered/Not Resolved]
  - Multiple allergies [Unknown]
  - Hypotension [Not Recovered/Not Resolved]
  - Gastrooesophageal reflux disease [Unknown]
  - Dry mouth [Not Recovered/Not Resolved]
  - Feeling abnormal [Not Recovered/Not Resolved]
  - Weight decreased [Not Recovered/Not Resolved]
  - Intentional product misuse [Not Recovered/Not Resolved]

NARRATIVE: CASE EVENT DATE: 2008
